FAERS Safety Report 5428290-7 (Version None)
Quarter: 2007Q3

REPORT INFORMATION
  Report Type: 
  Country: None (occurrence: None)
  Receive Date: 20070731
  Receipt Date: 20070501
  Transmission Date: 20080115
  Serious: No
  Sender: FDA-Public Use
  Company Number: US200705000519

PATIENT
  Age: 69 Year
  Sex: Female
  Weight: 79.8 kg

DRUGS (9)
  1. BYETTA [Suspect]
     Indication: TYPE 2 DIABETES MELLITUS
     Dosage: 5 UG, 2/D, SUBCU; 10 UG, 2/D, SUBCU; 10 UG, SUBCU
     Route: 058
     Dates: start: 20061201, end: 20070101
  2. BYETTA [Suspect]
     Indication: TYPE 2 DIABETES MELLITUS
     Dosage: 5 UG, 2/D, SUBCU; 10 UG, 2/D, SUBCU; 10 UG, SUBCU
     Route: 058
     Dates: start: 20070101, end: 20070101
  3. BYETTA [Suspect]
     Indication: TYPE 2 DIABETES MELLITUS
     Dosage: 5 UG, 2/D, SUBCU; 10 UG, 2/D, SUBCU; 10 UG, SUBCU
     Route: 058
     Dates: start: 20070417, end: 20070424
  4. EXENATIDE , DISPOSABLE DEVICE [Concomitant]
  5. GLUCOPHAGE (METFORMN) [Concomitant]
  6. STARLIX [Concomitant]
  7. LANTUS [Concomitant]
  8. EXENATIDE 5MCG PEN, DISPOSABLE DEVICE [Concomitant]
  9. EXENATIDE , DISPOSABLE DEVICE [Concomitant]

REACTIONS (4)
  - INFLUENZA [None]
  - NAUSEA [None]
  - VOMITING [None]
  - WEIGHT DECREASED [None]
